FAERS Safety Report 17047993 (Version 1)
Quarter: 2019Q4

REPORT INFORMATION
  Report Type: Spontaneous
  Country: US (occurrence: US)
  Receive Date: 20191119
  Receipt Date: 20191119
  Transmission Date: 20200122
  Serious: No
  Sender: FDA-Public Use
  Company Number: US-GILEAD-2019-0437930

PATIENT
  Age: 61 Year
  Sex: Female

DRUGS (3)
  1. OXYCODONE HYDROCHLORIDE. [Concomitant]
     Active Substance: OXYCODONE HYDROCHLORIDE
  2. INSULIN LISPRO [Concomitant]
     Active Substance: INSULIN LISPRO
  3. SOFOSBUVIR;VELPATASVIR [Suspect]
     Active Substance: SOFOSBUVIR\VELPATASVIR
     Indication: CHRONIC HEPATITIS C
     Dosage: 1 DOSAGE FORM, QD
     Route: 048
     Dates: start: 201910

REACTIONS (6)
  - Abdominal discomfort [Recovering/Resolving]
  - Somnolence [Recovering/Resolving]
  - Decreased appetite [Recovering/Resolving]
  - Flatulence [Recovering/Resolving]
  - Fatigue [Not Recovered/Not Resolved]
  - Product dose omission [Recovered/Resolved]

NARRATIVE: CASE EVENT DATE: 201910
